FAERS Safety Report 15869886 (Version 2)
Quarter: 2019Q1

REPORT INFORMATION
  Report Type: Report from Study
  Country: US (occurrence: US)
  Receive Date: 20190125
  Receipt Date: 20190215
  Transmission Date: 20190417
  Serious: Yes (Other)
  Sender: FDA-Public Use
  Company Number: US-ROCHE-2250611

PATIENT
  Sex: Female
  Weight: 85.35 kg

DRUGS (28)
  1. DEBROX [Concomitant]
     Active Substance: CARBAMIDE PEROXIDE
     Route: 065
  2. CLARITIN [Concomitant]
     Active Substance: LORATADINE
     Route: 065
  3. NUTROPIN AQ [Suspect]
     Active Substance: SOMATROPIN
     Indication: PRADER-WILLI SYNDROME
     Dosage: DAILY
     Route: 065
  4. ZONEGRAN [Concomitant]
     Active Substance: ZONISAMIDE
     Route: 065
  5. TYLENOL [Concomitant]
     Active Substance: ACETAMINOPHEN
     Dosage: 8 HOUR
     Route: 048
  6. TUMS [Concomitant]
     Active Substance: CALCIUM CARBONATE
     Route: 065
  7. LEXAPRO [Concomitant]
     Active Substance: ESCITALOPRAM OXALATE
     Route: 065
  8. LAMICTAL [Concomitant]
     Active Substance: LAMOTRIGINE
     Route: 065
  9. LINZESS [Concomitant]
     Active Substance: LINACLOTIDE
     Route: 065
  10. MIRALAX [Concomitant]
     Active Substance: POLYETHYLENE GLYCOL 3350
     Route: 065
  11. DIPROSONE [Concomitant]
     Active Substance: BETAMETHASONE DIPROPIONATE
     Route: 065
  12. METROCREAM [Concomitant]
     Active Substance: METRONIDAZOLE
     Route: 065
  13. CUTIVATE [Concomitant]
     Active Substance: FLUTICASONE PROPIONATE
     Route: 065
  14. IONAMINE [Concomitant]
     Active Substance: PHENTERMINE
     Route: 065
  15. NUTROPIN AQ [Suspect]
     Active Substance: SOMATROPIN
     Indication: GROWTH HORMONE DEFICIENCY
     Dosage: DAILY
     Route: 065
  16. BENZAC [Concomitant]
     Active Substance: SALICYLIC ACID
     Dosage: WASH
     Route: 065
  17. BENADRYL [Concomitant]
     Active Substance: DIPHENHYDRAMINE HYDROCHLORIDE
     Route: 065
  18. SYNTHROID [Concomitant]
     Active Substance: LEVOTHYROXINE SODIUM
     Route: 065
  19. LYRICA [Concomitant]
     Active Substance: PREGABALIN
     Route: 065
  20. LYRICA [Concomitant]
     Active Substance: PREGABALIN
     Route: 065
  21. CHOLECALCIFEROL [Concomitant]
     Active Substance: CHOLECALCIFEROL
     Route: 065
  22. MUCINEX [Concomitant]
     Active Substance: GUAIFENESIN
     Route: 065
  23. FANAPT [Concomitant]
     Active Substance: ILOPERIDONE
     Route: 048
  24. REVIA [Concomitant]
     Active Substance: NALTREXONE HYDROCHLORIDE
     Route: 065
  25. ZANTAC [Concomitant]
     Active Substance: RANITIDINE HYDROCHLORIDE
     Route: 065
  26. AMRIX [Concomitant]
     Active Substance: CYCLOBENZAPRINE HYDROCHLORIDE
     Route: 065
  27. MELATONIN [Concomitant]
     Active Substance: MELATONIN
     Route: 065
  28. KENALOG [Concomitant]
     Active Substance: TRIAMCINOLONE ACETONIDE
     Route: 065

REACTIONS (3)
  - Staphylococcal infection [Recovered/Resolved]
  - Incontinence [Unknown]
  - Oedema peripheral [Unknown]
